FAERS Safety Report 18232071 (Version 2)
Quarter: 2020Q4

REPORT INFORMATION
  Report Type: Spontaneous
  Country: JP (occurrence: JP)
  Receive Date: 20200904
  Receipt Date: 20201101
  Transmission Date: 20210113
  Serious: Yes (Other)
  Sender: FDA-Public Use
  Company Number: NVSJ2020JP007090

PATIENT
  Sex: Male

DRUGS (3)
  1. NEORAL [Suspect]
     Active Substance: CYCLOSPORINE
     Indication: PEMPHIGUS
     Dosage: 1.5 ML
     Route: 048
     Dates: start: 20200707
  2. NEORAL [Suspect]
     Active Substance: CYCLOSPORINE
  3. ISCOTIN [Suspect]
     Active Substance: ISONIAZID
     Indication: TUBERCULOSIS
     Dosage: UNK
     Route: 065
     Dates: start: 20200718

REACTIONS (3)
  - Product use in unapproved indication [Unknown]
  - Tuberculosis [Unknown]
  - Liver disorder [Unknown]

NARRATIVE: CASE EVENT DATE: 20200720
